FAERS Safety Report 11583683 (Version 1)
Quarter: 2015Q3

REPORT INFORMATION
  Report Type: Spontaneous
  Country: US (occurrence: None)
  Receive Date: 20150930
  Receipt Date: 20150930
  Transmission Date: 20151125
  Serious: Yes (Hospitalization)
  Sender: FDA-Public Use
  Company Number: None

PATIENT
  Age: 77 Year
  Sex: Male
  Weight: 119.8 kg

DRUGS (2)
  1. ASPIRIN. [Suspect]
     Active Substance: ASPIRIN
     Indication: CORONARY ARTERIAL STENT INSERTION
     Route: 048
     Dates: start: 20130424, end: 20150910
  2. WARFARIN [Suspect]
     Active Substance: WARFARIN
     Indication: ATRIAL FIBRILLATION
     Dates: start: 19941101, end: 20150910

REACTIONS (7)
  - Blood pressure orthostatic [None]
  - Hypertension [None]
  - Atrial fibrillation [None]
  - Haemoglobin decreased [None]
  - Gastric haemorrhage [None]
  - Gastric ulcer [None]
  - Laboratory test interference [None]

NARRATIVE: CASE EVENT DATE: 20150910
